FAERS Safety Report 9340847 (Version 2)
Quarter: 2013Q3

REPORT INFORMATION
  Report Type: Spontaneous
  Country: GB (occurrence: None)
  Receive Date: 20130605
  Receipt Date: 20130802
  Transmission Date: 20140515
  Serious: Yes (Other)
  Sender: FDA-Public Use
  Company Number: THQ2013A04173

PATIENT
  Age: 59 Year
  Sex: Male

DRUGS (6)
  1. ZOTON [Suspect]
     Indication: VOMITING
     Dosage: 30MG 1 IN 1D.
     Route: 048
     Dates: start: 20130513
  2. DIAZEPAM [Concomitant]
  3. BACLOFEN [Concomitant]
  4. CARBAMAZEPINE [Concomitant]
  5. CALFOVIT D3 (COLECALCIFEROL, CALCIUM PHOSPHATE) [Concomitant]
  6. VALPROATE SODIUM [Concomitant]

REACTIONS (3)
  - Product size issue [None]
  - Foreign body aspiration [None]
  - Dysphagia [None]
